FAERS Safety Report 21935144 (Version 2)
Quarter: 2023Q1

REPORT INFORMATION
  Report Type: Spontaneous
  Country: US (occurrence: None)
  Receive Date: 20230201
  Receipt Date: 20230313
  Transmission Date: 20230418
  Serious: No
  Sender: FDA-Public Use
  Company Number: 2023A015605

PATIENT
  Sex: Female

DRUGS (3)
  1. PULMICORT FLEXHALER [Suspect]
     Active Substance: BUDESONIDE
     Indication: Cough
     Dosage: 180 MCG, 120 INHALATIONS, INHALER, 2 INHALATIONS 2 TIMES A DAY
     Route: 055
  2. PULMICORT FLEXHALER [Suspect]
     Active Substance: BUDESONIDE
     Indication: Bronchitis
     Dosage: 180 MCG, 120 INHALATIONS, INHALER, 2 INHALATIONS 2 TIMES A DAY
     Route: 055
  3. PULMICORT FLEXHALER [Suspect]
     Active Substance: BUDESONIDE
     Indication: Asthma
     Dosage: 180 MCG, 120 INHALATIONS, INHALER, 2 INHALATIONS 2 TIMES A DAY
     Route: 055

REACTIONS (9)
  - Taste disorder [Unknown]
  - Chest discomfort [Unknown]
  - Off label use [Unknown]
  - Device use issue [Unknown]
  - Wrong technique in device usage process [Unknown]
  - Incorrect dose administered by device [Unknown]
  - Product dose omission issue [Unknown]
  - Intentional product use issue [Unknown]
  - Device malfunction [Unknown]
